FAERS Safety Report 8503254-5 (Version None)
Quarter: 2012Q3

REPORT INFORMATION
  Report Type: 
  Country: None (occurrence: None)
  Receive Date: 20120711
  Receipt Date: 20120626
  Transmission Date: 20120928
  Serious: Yes (Other)
  Sender: FDA-Public Use
  Company Number: JP-PFIZER INC-2012163953

PATIENT
  Age: 71 Year
  Sex: Female
  Weight: 49.4 kg

DRUGS (2)
  1. LIPITOR [Suspect]
     Indication: HYPERCHOLESTEROLAEMIA
     Dosage: 10 MG, UID/QD
     Route: 048
     Dates: start: 20110901, end: 20120119
  2. ZONISAMIDE [Suspect]
     Dosage: UNK
     Route: 048

REACTIONS (2)
  - DRUG ERUPTION [None]
  - HEPATIC FUNCTION ABNORMAL [None]
